FAERS Safety Report 6005902-0 (Version None)
Quarter: 2008Q4

REPORT INFORMATION
  Report Type: 
  Country: None (occurrence: None)
  Receive Date: 20081217
  Receipt Date: 20081212
  Transmission Date: 20090506
  Serious: Yes (Hospitalization)
  Sender: FDA-Public Use
  Company Number: FR-WYE-G02769908

PATIENT
  Sex: Male

DRUGS (5)
  1. EFFEXOR [Suspect]
     Indication: DEPRESSION
     Dosage: UNKNOWN
     Route: 048
  2. ZOLPIDEM [Suspect]
     Indication: INSOMNIA
     Dosage: 10 MG STRENGTH; FREQUENCY UNSPECIFIED
     Route: 048
  3. SEROPLEX [Suspect]
     Indication: DEPRESSION
     Dosage: UNKNOWN
     Route: 048
  4. ATACAND [Suspect]
     Indication: HYPERTENSION
     Dosage: 8 MG STRENGTH; FREQUENCY UNSPECIFIED
     Route: 048
     Dates: start: 20070101
  5. VASTAREL [Suspect]
     Dosage: UNKNOWN
     Route: 048

REACTIONS (5)
  - CONDITION AGGRAVATED [None]
  - DRUG INEFFECTIVE [None]
  - FALL [None]
  - HYPERTENSION [None]
  - MALAISE [None]
